FAERS Safety Report 16842910 (Version 2)
Quarter: 2019Q3

REPORT INFORMATION
  Report Type: Spontaneous
  Country: US (occurrence: US)
  Receive Date: 20190924
  Receipt Date: 20190926
  Transmission Date: 20191005
  Serious: Yes (Hospitalization, Other)
  Sender: FDA-Public Use
  Company Number: US-APOTEX-2019AP022317

PATIENT
  Age: 66 Year
  Sex: Female

DRUGS (1)
  1. BUSPIRONE [Suspect]
     Active Substance: BUSPIRONE HYDROCHLORIDE
     Indication: PRODUCT USED FOR UNKNOWN INDICATION
     Dosage: UNK
     Route: 065

REACTIONS (8)
  - Feeling abnormal [Unknown]
  - Somnolence [Unknown]
  - Drug abuse [Unknown]
  - Hallucination, visual [Unknown]
  - Agitation [Unknown]
  - Syncope [Unknown]
  - Intentional product use issue [Unknown]
  - Drooling [Unknown]
